FAERS Safety Report 9016789 (Version 1)
Quarter: 2013Q1

REPORT INFORMATION
  Report Type: Spontaneous
  Country: US (occurrence: US)
  Receive Date: 20130117
  Receipt Date: 20130117
  Transmission Date: 20140127
  Serious: Yes (Other)
  Sender: FDA-Public Use
  Company Number: US-JNJFOC-20130108135

PATIENT
  Sex: Female

DRUGS (2)
  1. BENADRYL [Suspect]
     Indication: SEASONAL ALLERGY
     Route: 065
  2. BENADRYL [Suspect]
     Indication: RHINORRHOEA
     Route: 065

REACTIONS (2)
  - Swelling [Recovered/Resolved]
  - Urticaria [Recovered/Resolved]
